FAERS Safety Report 6518591-3 (Version None)
Quarter: 2009Q4

REPORT INFORMATION
  Report Type: 
  Country: None (occurrence: None)
  Receive Date: 20091228
  Receipt Date: 20091221
  Transmission Date: 20100525
  Serious: Yes (Other)
  Sender: FDA-Public Use
  Company Number: US-B.I. PHARMACEUTICALS,INC./RIDGEFIELD-2009-BP-13942BP

PATIENT
  Sex: Male

DRUGS (10)
  1. SPIRIVA [Suspect]
     Indication: EMPHYSEMA
     Dosage: 18 MCG
     Route: 055
     Dates: start: 20040101
  2. SPIRIVA [Suspect]
     Indication: CHRONIC OBSTRUCTIVE PULMONARY DISEASE
  3. ADVAIR DISKUS 100/50 [Concomitant]
     Indication: EMPHYSEMA
  4. THEOPHYLLINE [Concomitant]
     Indication: EMPHYSEMA
  5. AVODART [Concomitant]
     Indication: PROSTATOMEGALY
  6. TERAZOSIN HCL [Concomitant]
     Indication: PROSTATOMEGALY
  7. HYDROXYZINE [Concomitant]
     Indication: PRURITUS
  8. PLAVIX [Concomitant]
  9. PRAVASTATIN [Concomitant]
  10. LISINOPRIL [Concomitant]

REACTIONS (4)
  - BLOOD CHOLESTEROL INCREASED [None]
  - HYPERTENSION [None]
  - LUNG NEOPLASM [None]
  - TRANSIENT ISCHAEMIC ATTACK [None]
